FAERS Safety Report 17553669 (Version 2)
Quarter: 2020Q1

REPORT INFORMATION
  Report Type: Spontaneous
  Country: DK (occurrence: DK)
  Receive Date: 20200317
  Receipt Date: 20200326
  Transmission Date: 20200409
  Serious: Yes (Other)
  Sender: FDA-Public Use
  Company Number: NVSC2020DK072118

PATIENT
  Age: 57 Year
  Sex: Female

DRUGS (5)
  1. ALENDRONAT [Suspect]
     Active Substance: ALENDRONATE SODIUM
     Indication: OSTEOPOROSIS
     Dosage: 70 MG, QW
     Route: 065
     Dates: start: 20190330
  2. ENALAPRIL ^SANDOZ^ [Suspect]
     Active Substance: ENALAPRIL
     Indication: HYPERTENSION
     Dosage: 5 MG, QD
     Route: 065
     Dates: start: 20191223
  3. ENALAPRIL ^SANDOZ^ [Suspect]
     Active Substance: ENALAPRIL
     Indication: BLOOD CREATININE
  4. ELTROXIN [Concomitant]
     Active Substance: LEVOTHYROXINE
     Indication: PRODUCT USED FOR UNKNOWN INDICATION
     Dosage: 8 DF, QW (100 MCG)
     Route: 065
  5. ALENDRONAT [Suspect]
     Active Substance: ALENDRONATE SODIUM
     Dosage: UNK, QW
     Route: 065
     Dates: start: 20200303

REACTIONS (4)
  - Renal impairment [Unknown]
  - Blood creatinine increased [Unknown]
  - Dehydration [Unknown]
  - Thyroid function test abnormal [Unknown]
